FAERS Safety Report 5929700-9 (Version None)
Quarter: 2008Q4

REPORT INFORMATION
  Report Type: 
  Country: None (occurrence: None)
  Receive Date: 20081021
  Receipt Date: 20081013
  Transmission Date: 20090506
  Serious: Yes (Hospitalization)
  Sender: FDA-Public Use
  Company Number: 2008BI027471

PATIENT
  Age: 71 Year
  Sex: Female

DRUGS (5)
  1. AVONEX [Suspect]
     Dosage: 30 UG;QW;IM
     Route: 030
     Dates: end: 20030701
  2. AVONEX [Suspect]
     Dosage: 30 UG;QW;IM
     Route: 030
     Dates: start: 20030801
  3. AVONEX [Suspect]
     Dosage: 30 UG;QW;IM
     Route: 030
     Dates: start: 20070201
  4. CON MEDS [Concomitant]
  5. PREV MEDS [Concomitant]

REACTIONS (2)
  - DEHYDRATION [None]
  - HYPERTENSION [None]
